FAERS Safety Report 23891829 (Version 4)
Quarter: 2024Q3

REPORT INFORMATION
  Report Type: Spontaneous
  Country: JP (occurrence: JP)
  Receive Date: 20240524
  Receipt Date: 20240805
  Transmission Date: 20241017
  Serious: Yes (Other)
  Sender: SANOFI AVENTIS
  Company Number: JP-SA-2024SA152550

PATIENT
  Age: 46 Year
  Sex: Male

DRUGS (3)
  1. DUPIXENT [Suspect]
     Active Substance: DUPILUMAB
     Indication: Chronic eosinophilic rhinosinusitis
     Dosage: DAILY DOSE: 300 MG, QOW
     Route: 058
     Dates: start: 20230116
  2. BETAMETHASONE [Concomitant]
     Active Substance: BETAMETHASONE\BETAMETHASONE DIPROPIONATE
     Indication: Chronic rhinosinusitis with nasal polyps
     Dosage: 0.5 MG 7/DAY USED 4/5 TIMES A YEAR
     Route: 065
  3. BETAMETHASONE [Concomitant]
     Active Substance: BETAMETHASONE\BETAMETHASONE DIPROPIONATE
     Dosage: 0.25 MG 7/DAY USED 4/5 TIMES A YEAR
     Route: 065

REACTIONS (3)
  - Eosinophilic granulomatosis with polyangiitis [Recovering/Resolving]
  - Arthralgia [Recovering/Resolving]
  - Hypoaesthesia [Recovering/Resolving]

NARRATIVE: CASE EVENT DATE: 20230101
